FAERS Safety Report 4654577-1 (Version None)
Quarter: 2005Q2

REPORT INFORMATION
  Report Type: 
  Country: None (occurrence: None)
  Receive Date: 20050404
  Receipt Date: 20041206
  Transmission Date: 20051028
  Serious: No
  Sender: FDA-Public Use
  Company Number: USA041285343

PATIENT
  Age: 82 Year
  Sex: Female
  Weight: 57 kg

DRUGS (4)
  1. CYMBALTA [Suspect]
     Dosage: 30 MG
     Dates: start: 20041120
  2. FOSAMAX [Concomitant]
  3. MOBIC [Concomitant]
  4. MIRALAX [Concomitant]

REACTIONS (8)
  - ANXIETY [None]
  - CONSTIPATION [None]
  - DIZZINESS [None]
  - DRUG INEFFECTIVE [None]
  - HEART RATE INCREASED [None]
  - JOINT SWELLING [None]
  - NAUSEA [None]
  - TENSION [None]
